FAERS Safety Report 11011070 (Version 1)
Quarter: 2015Q2

REPORT INFORMATION
  Report Type: Spontaneous
  Country: US (occurrence: US)
  Receive Date: 20150410
  Receipt Date: 20150410
  Transmission Date: 20150821
  Serious: No
  Sender: FDA-Public Use
  Company Number: US-PFIZER INC-2015061618

PATIENT
  Sex: Female
  Weight: 62 kg

DRUGS (7)
  1. CODEINE [Suspect]
     Active Substance: CODEINE
     Dosage: UNK
  2. DARVOCET [Suspect]
     Active Substance: ACETAMINOPHEN\PROPOXYPHENE HYDROCHLORIDE
     Dosage: UNK
  3. PERCODAN [Suspect]
     Active Substance: ASPIRIN\OXYCODONE HYDROCHLORIDE
     Dosage: UNK
  4. DILAUDID [Suspect]
     Active Substance: HYDROMORPHONE HYDROCHLORIDE
  5. PERCOCET [Suspect]
     Active Substance: ACETAMINOPHEN\OXYCODONE HYDROCHLORIDE
  6. AMLODIPINE [Suspect]
     Active Substance: AMLODIPINE BESYLATE
  7. DARVON [Suspect]
     Active Substance: PROPOXYPHENE HYDROCHLORIDE

REACTIONS (2)
  - Nausea [Unknown]
  - Drug hypersensitivity [Not Recovered/Not Resolved]

NARRATIVE: CASE EVENT DATE: 1980
